FAERS Safety Report 5038195-1 (Version None)
Quarter: 2006Q2

REPORT INFORMATION
  Report Type: 
  Country: None (occurrence: None)
  Receive Date: 20060622
  Receipt Date: 20060612
  Transmission Date: 20061013
  Serious: Yes (Hospitalization, Other)
  Sender: FDA-Public Use
  Company Number: 2006050721

PATIENT
  Age: 62 Year
  Sex: Female
  Weight: 63.05 kg

DRUGS (1)
  1. BEXTRA [Suspect]
     Indication: OSTEOPOROSIS
     Dosage: 10 MG (10 MG, 1 IN 1 D)
     Dates: start: 20040116, end: 20041101

REACTIONS (7)
  - CEREBROVASCULAR ACCIDENT [None]
  - DIFFICULTY IN WALKING [None]
  - DYSPHASIA [None]
  - FALL [None]
  - GAIT DISTURBANCE [None]
  - HYPOAESTHESIA [None]
  - MONOPLEGIA [None]
